FAERS Safety Report 4492076-0 (Version None)
Quarter: 2004Q4

REPORT INFORMATION
  Report Type: 
  Country: None (occurrence: None)
  Receive Date: 20041029
  Receipt Date: 20041013
  Transmission Date: 20050328
  Serious: Yes (Other)
  Sender: FDA-Public Use
  Company Number: 2004-DE-05597DE

PATIENT
  Age: 73 Year
  Sex: Male

DRUGS (1)
  1. PRAMIPEXOLE         (PRAMIPEXOLE DIHYDROCHLORIDE) [Suspect]
     Dosage: 45 MG, PO
     Route: 048
     Dates: start: 19950111

REACTIONS (6)
  - ANXIETY [None]
  - ASTHENIA [None]
  - CEREBRAL ATROPHY [None]
  - CONSTIPATION [None]
  - CORONARY ARTERY DISEASE [None]
  - DEPRESSION [None]
